FAERS Safety Report 25327090 (Version 1)
Quarter: 2025Q2

REPORT INFORMATION
  Report Type: Spontaneous
  Country: US (occurrence: US)
  Receive Date: 20250517
  Receipt Date: 20250517
  Transmission Date: 20250716
  Serious: Yes (Other)
  Sender: AMGEN
  Company Number: US-AMGEN-USASP2025093448

PATIENT
  Age: 59 Year
  Sex: Female

DRUGS (2)
  1. EVENITY [Suspect]
     Active Substance: ROMOSOZUMAB-AQQG
     Indication: Osteoporosis
     Route: 058
     Dates: start: 20250113
  2. CELEBREX [Concomitant]
     Active Substance: CELECOXIB
     Indication: Arthritis

REACTIONS (10)
  - Arthritis [Unknown]
  - Liver disorder [Unknown]
  - Headache [Not Recovered/Not Resolved]
  - Pain [Unknown]
  - Asthenia [Recovered/Resolved]
  - Mobility decreased [Not Recovered/Not Resolved]
  - Inappropriate schedule of product administration [Unknown]
  - Loss of personal independence in daily activities [Not Recovered/Not Resolved]
  - Feeling hot [Unknown]
  - Sleep disorder due to a general medical condition [Unknown]

NARRATIVE: CASE EVENT DATE: 20250114
